FAERS Safety Report 10256485 (Version 1)
Quarter: 2014Q2

REPORT INFORMATION
  Report Type: Report from Study
  Country: DE (occurrence: DE)
  Receive Date: 20140624
  Receipt Date: 20140624
  Transmission Date: 20141212
  Serious: Yes (Death, Hospitalization)
  Sender: FDA-Public Use
  Company Number: DE-JNJFOC-20130718940

PATIENT
  Age: 87 Year
  Sex: Female
  Weight: 67.3 kg

DRUGS (33)
  1. RIVAROXABAN [Suspect]
     Indication: ATRIAL FIBRILLATION
     Route: 048
     Dates: start: 20130412, end: 20130630
  2. RIVAROXABAN [Suspect]
     Indication: ATRIAL FIBRILLATION
     Route: 048
     Dates: start: 20130410, end: 20130410
  3. RIVAROXABAN [Suspect]
     Indication: CEREBROVASCULAR ACCIDENT PROPHYLAXIS
     Route: 048
     Dates: start: 20130412, end: 20130630
  4. RIVAROXABAN [Suspect]
     Indication: CEREBROVASCULAR ACCIDENT PROPHYLAXIS
     Route: 048
     Dates: start: 20130410, end: 20130410
  5. TRAMADOL [Concomitant]
     Route: 065
     Dates: start: 20130422, end: 201306
  6. TAVANIC [Concomitant]
     Route: 065
     Dates: start: 20130703, end: 20130705
  7. PARACETAMOL [Concomitant]
     Route: 065
     Dates: start: 20130703, end: 20130705
  8. ASS [Concomitant]
     Indication: ANTICOAGULANT THERAPY
     Route: 065
     Dates: start: 200611, end: 20130311
  9. DELIX [Concomitant]
     Route: 065
     Dates: start: 20130513, end: 20130703
  10. DELIX [Concomitant]
     Route: 065
     Dates: start: 2008, end: 20130412
  11. BELOC ZOK [Concomitant]
     Route: 065
     Dates: start: 20130310, end: 20130703
  12. GLIMEPIRIDE [Concomitant]
     Route: 065
     Dates: start: 20130410, end: 20130705
  13. GLIMEPIRIDE [Concomitant]
     Route: 065
     Dates: start: 200812, end: 20130703
  14. SIMVASTATIN [Concomitant]
     Route: 065
     Dates: start: 20060207, end: 20130703
  15. ADUMBRAN [Concomitant]
     Route: 065
     Dates: start: 20011105, end: 20130703
  16. DELIX PLUS [Concomitant]
     Route: 065
     Dates: start: 20100427, end: 20130412
  17. METFORMIN [Concomitant]
     Route: 065
     Dates: start: 20130416, end: 20130703
  18. METFORMIN [Concomitant]
     Route: 065
     Dates: start: 20050529, end: 20130410
  19. AMLODIPINE [Concomitant]
     Route: 065
     Dates: start: 2006, end: 20130410
  20. KEPPRA [Concomitant]
     Route: 065
     Dates: start: 20130704
  21. TAVOR [Concomitant]
     Route: 065
     Dates: start: 20130704, end: 20130705
  22. TAVOR [Concomitant]
     Route: 065
     Dates: start: 20130630, end: 20130705
  23. NOVALGIN [Concomitant]
     Route: 065
     Dates: start: 20130704, end: 20130705
  24. FRAXIPARIN [Concomitant]
     Dosage: TOTAL DAILY DOSE
     Route: 065
     Dates: start: 20130703, end: 20130705
  25. TAVANIC [Concomitant]
     Route: 065
     Dates: start: 20130703, end: 20130705
  26. PARACETAMOL [Concomitant]
     Route: 065
     Dates: start: 20130703, end: 20130705
  27. PARACETAMOL [Concomitant]
     Route: 065
     Dates: start: 20130630, end: 201307
  28. DICLOFENAC [Concomitant]
     Route: 065
     Dates: start: 20130422, end: 20130705
  29. LEVETIRACETAM [Concomitant]
     Route: 065
     Dates: start: 20130630, end: 20130705
  30. HYDROCHLOROTHIAZID [Concomitant]
     Route: 065
     Dates: start: 20130422, end: 201307
  31. TARGIN [Concomitant]
     Route: 065
     Dates: start: 2013, end: 20130630
  32. ADDEL [Concomitant]
     Route: 065
     Dates: start: 20130630
  33. CERNEVIT [Concomitant]
     Route: 065
     Dates: start: 20130630, end: 201307

REACTIONS (4)
  - Pneumonia aspiration [Fatal]
  - Cerebral infarction [Not Recovered/Not Resolved]
  - Haemorrhagic transformation stroke [Not Recovered/Not Resolved]
  - Haemorrhagic transformation stroke [Not Recovered/Not Resolved]
